FAERS Safety Report 7099946-8 (Version None)
Quarter: 2010Q4

REPORT INFORMATION
  Report Type: 
  Country: None (occurrence: None)
  Receive Date: 20101104
  Receipt Date: 20101025
  Transmission Date: 20110411
  Serious: Yes (Hospitalization, Other)
  Sender: FDA-Public Use
  Company Number: 2010-3583

PATIENT
  Age: 6 Year
  Sex: Male
  Weight: 17.1 kg

DRUGS (1)
  1. INCRELEX [Suspect]
     Indication: INSULIN-LIKE GROWTH FACTOR DECREASED
     Dosage: 0.22 MG/KG (0.11 MG/KG, 2 IN 1 D), SUBCUTANEOUS
     Route: 058
     Dates: start: 20090302, end: 20090515

REACTIONS (6)
  - ADENOTONSILLECTOMY [None]
  - DISEASE RECURRENCE [None]
  - HAEMATURIA [None]
  - IGA NEPHROPATHY [None]
  - LABORATORY TEST ABNORMAL [None]
  - STREPTOCOCCAL INFECTION [None]
